FAERS Safety Report 8195932-5 (Version None)
Quarter: 2012Q1

REPORT INFORMATION
  Report Type: 
  Country: None (occurrence: None)
  Receive Date: 20120308
  Receipt Date: 20120224
  Transmission Date: 20120608
  Serious: Yes (Death)
  Sender: FDA-Public Use
  Company Number: NL-MYLANLABS-2012S1004553

PATIENT
  Age: 48 Year
  Sex: Female

DRUGS (3)
  1. VORICONAZOLE [Suspect]
     Indication: ASPERGILLOMA
     Route: 065
     Dates: start: 20080101, end: 20081201
  2. ITRACONAZOLE [Suspect]
     Indication: ASPERGILLOMA
     Route: 065
     Dates: start: 20000401, end: 20080101
  3. VORICONAZOLE [Suspect]
     Indication: ASPERGILLOMA
     Route: 065
     Dates: start: 20081201, end: 20090101

REACTIONS (2)
  - DRUG RESISTANCE [None]
  - DRUG INEFFECTIVE [None]
